FAERS Safety Report 12453500 (Version 2)
Quarter: 2016Q2

REPORT INFORMATION
  Report Type: Spontaneous
  Country: US (occurrence: US)
  Receive Date: 20160609
  Receipt Date: 20160614
  Transmission Date: 20160815
  Serious: Yes (Life-Threatening, Hospitalization, Other)
  Sender: FDA-Public Use
  Company Number: US-PFIZER INC-2002052059

PATIENT
  Age: 67 Year
  Sex: Male
  Weight: 79 kg

DRUGS (11)
  1. LIPITOR [Suspect]
     Active Substance: ATORVASTATIN CALCIUM
     Indication: BLOOD TRIGLYCERIDES INCREASED
     Dosage: 10 MG, DAILY
     Route: 048
     Dates: start: 20010731, end: 20011014
  2. NICOTINIC ACID [Suspect]
     Active Substance: NIACIN
     Indication: DYSLIPIDAEMIA
     Dosage: 2 G, DAILY (BEDTIME)
     Route: 048
     Dates: start: 20000907
  3. ASPIRIN. [Suspect]
     Active Substance: ASPIRIN
     Indication: PROPHYLAXIS
     Dosage: 81 MG, DAILY (BEDTIME)
     Route: 048
     Dates: start: 20000907, end: 20011015
  4. LISINOPRIL. [Concomitant]
     Active Substance: LISINOPRIL
     Dosage: 2.5 MG, DAILY
     Route: 048
     Dates: start: 1993
  5. LIPITOR [Suspect]
     Active Substance: ATORVASTATIN CALCIUM
     Indication: HIGH DENSITY LIPOPROTEIN DECREASED
  6. CENTRUM SILVER [Concomitant]
     Active Substance: MINERALS\VITAMINS
     Dosage: UNK, DAILY (1 VITAMIN)
     Route: 048
     Dates: start: 1990
  7. RETINOL [Concomitant]
     Active Substance: RETINOL
     Dosage: 8500 IU, DAILY
     Route: 048
     Dates: start: 1990
  8. TOCOPHEROL [Concomitant]
     Active Substance: TOCOPHEROL
     Dosage: 400 MG, DAILY
     Route: 048
     Dates: start: 1990
  9. LIPITOR [Suspect]
     Active Substance: ATORVASTATIN CALCIUM
     Indication: DYSLIPIDAEMIA
     Dosage: 10 MG, DAILY (BEDTIME)
     Route: 048
     Dates: start: 1996
  10. LIPITOR [Suspect]
     Active Substance: ATORVASTATIN CALCIUM
     Indication: LOW DENSITY LIPOPROTEIN INCREASED
     Dosage: 20 MG, DAILY
     Route: 048
     Dates: end: 20000907
  11. ASCORBIC ACID. [Concomitant]
     Active Substance: ASCORBIC ACID
     Dosage: 500 MG, 2X/DAY
     Route: 048
     Dates: start: 1990

REACTIONS (10)
  - Hydrocephalus [Recovered/Resolved]
  - Staphylococcal infection [Recovered/Resolved]
  - Subarachnoid haemorrhage [Recovered/Resolved]
  - Cerebral ischaemia [Recovered/Resolved]
  - Meningioma [Recovered/Resolved]
  - Acute respiratory distress syndrome [Recovered/Resolved]
  - Weight decreased [Not Recovered/Not Resolved]
  - Central nervous system infection [Recovered/Resolved]
  - Pulmonary oedema [Recovered/Resolved]
  - Cerebral vasoconstriction [Recovered/Resolved]

NARRATIVE: CASE EVENT DATE: 2001
